FAERS Safety Report 19422258 (Version 1)
Quarter: 2021Q2

REPORT INFORMATION
  Report Type: Spontaneous
  Country: GB (occurrence: GB)
  Receive Date: 20210616
  Receipt Date: 20210616
  Transmission Date: 20210717
  Serious: Yes (Life-Threatening, Hospitalization, Disabling, Other)
  Sender: FDA-Public Use
  Company Number: GB-EMCURE PHARMACEUTICALS LTD-2021-EPL-001871

PATIENT
  Age: 3 Decade
  Sex: Female

DRUGS (1)
  1. METFORMIN [Suspect]
     Active Substance: METFORMIN HYDROCHLORIDE
     Indication: TYPE 2 DIABETES MELLITUS
     Dosage: 500 MILLIGRAM
     Route: 048

REACTIONS (10)
  - Iron deficiency anaemia [Recovering/Resolving]
  - Vitamin D deficiency [Recovering/Resolving]
  - Bursitis [Recovering/Resolving]
  - Muscle atrophy [Recovering/Resolving]
  - Weight decreased [Recovering/Resolving]
  - Dyspnoea [Recovering/Resolving]
  - Calcium deficiency [Recovering/Resolving]
  - Medication error [Unknown]
  - Decreased appetite [Recovering/Resolving]
  - Myalgia [Recovering/Resolving]
